FAERS Safety Report 5766565-2 (Version None)
Quarter: 2008Q2

REPORT INFORMATION
  Report Type: 
  Country: None (occurrence: None)
  Receive Date: 20080611
  Receipt Date: 20080611
  Transmission Date: 20081010
  Serious: Yes (Hospitalization)
  Sender: FDA-Public Use
  Company Number: None

PATIENT
  Age: 73 Year
  Sex: Female
  Weight: 71 kg

DRUGS (2)
  1. RECOMBINANT FACTOR 7 -NOVOSEVEN- 1200MCG / 4800MCG [Suspect]
     Indication: GASTROINTESTINAL HAEMORRHAGE
     Dosage: 6000MCG ONE TIME IV BOLUS
     Route: 040
     Dates: start: 20080607, end: 20080607
  2. RECOMBINANT FACTOR 7 -NOVOSEVEN- 1200MCG / 4800MCG [Suspect]
     Indication: WOUND SECRETION
     Dosage: 6000MCG ONE TIME IV BOLUS
     Route: 040
     Dates: start: 20080607, end: 20080607

REACTIONS (5)
  - APHASIA [None]
  - DEPRESSED LEVEL OF CONSCIOUSNESS [None]
  - DYSARTHRIA [None]
  - MENTAL STATUS CHANGES [None]
  - SPEECH DISORDER [None]
